FAERS Safety Report 8499535-4 (Version None)
Quarter: 2012Q2

REPORT INFORMATION
  Report Type: 
  Country: None (occurrence: None)
  Receive Date: 20120629
  Receipt Date: 20120618
  Transmission Date: 20120825
  Serious: Yes (Other)
  Sender: FDA-Public Use
  Company Number: GB-GDP-12414135

PATIENT
  Age: 71 Year
  Sex: 0
  Weight: 66.1 kg

DRUGS (17)
  1. CARBOCISTEINE [Concomitant]
  2. ASPIRIN/ 01428701/ [Concomitant]
  3. TIOTROPIOM BROMIDE [Concomitant]
  4. PREDNISOLONE [Concomitant]
  5. VENTOLIN [Concomitant]
  6. DOXYCYCLINE [Suspect]
     Indication: PRODUCT USED FOR UNKNOWN INDICATION
     Dates: start: 20120528
  7. ALPHOSYL /00325301/ [Concomitant]
  8. GAVISCON [Concomitant]
  9. FOLIC ACID [Concomitant]
  10. ACITRETIN [Concomitant]
  11. SIMVASTATIN [Concomitant]
  12. SALMETEROL [Concomitant]
  13. ASPIRIN/ 01428701/ [Concomitant]
  14. SERTRALINE HYDROCHLORIDE [Concomitant]
  15. AMOXICILLIN [Concomitant]
  16. FENTANYL [Concomitant]
  17. ALBUTEROL SULATE [Concomitant]

REACTIONS (1)
  - VOMITING [None]
